FAERS Safety Report 10017097 (Version 2)
Quarter: 2014Q1

REPORT INFORMATION
  Report Type: Spontaneous
  Country: JP (occurrence: JP)
  Receive Date: 20140318
  Receipt Date: 20140318
  Transmission Date: 20141002
  Serious: Yes (Other)
  Sender: FDA-Public Use
  Company Number: JP-AMGEN-JPNSP2014008289

PATIENT
  Age: 82 Year
  Sex: Male

DRUGS (1)
  1. VECTIBIX [Suspect]
     Indication: NEOPLASM MALIGNANT
     Dosage: UNK UNK, Q2WK
     Route: 041
     Dates: start: 20131114

REACTIONS (1)
  - Paronychia [Not Recovered/Not Resolved]
